FAERS Safety Report 5392802-2 (Version None)
Quarter: 2007Q3

REPORT INFORMATION
  Report Type: 
  Country: None (occurrence: None)
  Receive Date: 20070720
  Receipt Date: 20070711
  Transmission Date: 20080115
  Serious: No
  Sender: FDA-Public Use
  Company Number: JP-PFIZER INC-2007050380

PATIENT
  Age: 45 Year
  Sex: Male

DRUGS (2)
  1. NORVASC [Suspect]
     Indication: HYPERTENSION
     Dosage: DAILY DOSE:5MG
     Route: 048
     Dates: start: 20070616, end: 20070618
  2. PULMICORT [Concomitant]

REACTIONS (2)
  - ASTHMA [None]
  - MALAISE [None]
